FAERS Safety Report 6456305-6 (Version None)
Quarter: 2009Q4

REPORT INFORMATION
  Report Type: 
  Country: None (occurrence: None)
  Receive Date: 20091124
  Receipt Date: 20091124
  Transmission Date: 20100525
  Serious: Yes (Other)
  Sender: FDA-Public Use
  Company Number: None

PATIENT
  Age: 35 Year
  Sex: Female
  Weight: 83.9154 kg

DRUGS (1)
  1. ZOLPIDEM [Suspect]
     Indication: SLEEP DISORDER
     Dosage: 5 MG ONCE @ HS
     Dates: start: 20090408

REACTIONS (3)
  - IRRITABILITY [None]
  - PRODUCT SUBSTITUTION ISSUE [None]
  - THERAPEUTIC PRODUCT INEFFECTIVE [None]
